FAERS Safety Report 6140642-9 (Version None)
Quarter: 2009Q1

REPORT INFORMATION
  Report Type: 
  Country: None (occurrence: None)
  Receive Date: 20090331
  Receipt Date: 20090317
  Transmission Date: 20090719
  Serious: Yes (Hospitalization)
  Sender: FDA-Public Use
  Company Number: CAP09000052

PATIENT
  Age: 70 Year
  Sex: Female

DRUGS (15)
  1. ACTONEL [Suspect]
     Indication: OSTEOPOROSIS
     Dosage: 35MG ONCE WEEKLY, ORAL
     Route: 048
     Dates: start: 20070301
  2. INVESTIGATIONAL DRUG (INVESTIGATIONAL DRUG) [Suspect]
     Indication: CARDIOVASCULAR EVENT PROPHYLAXIS
     Dosage: 20 MG ONCE DAILY, ORAL
     Route: 048
     Dates: start: 20070522, end: 20081106
  3. ACETYLSALICYLIC ACID SRT [Concomitant]
  4. IRBESARTAN [Concomitant]
  5. ALTACE [Concomitant]
  6. FIBRATES [Concomitant]
  7. ORAL ANTIDIABETICS [Concomitant]
  8. METFORMIN HCL [Concomitant]
  9. NOVOLIN /00646002/ (INSULIN HUMAN INJECTIONS, ISOPHANE) [Concomitant]
  10. NOVOLOG [Concomitant]
  11. LEVEMIR [Concomitant]
  12. DILTIAZEM [Concomitant]
  13. VENTOLIN [Concomitant]
  14. RABEPRAZOLE SODIUM [Concomitant]
  15. TUMS /0010001/ (CALCIUM CARBONATE) [Concomitant]

REACTIONS (25)
  - ACTIVATED PARTIAL THROMBOPLASTIN TIME PROLONGED [None]
  - ANGINA UNSTABLE [None]
  - BLOOD CREATINE PHOSPHOKINASE INCREASED [None]
  - BLOOD CREATININE INCREASED [None]
  - BLOOD POTASSIUM INCREASED [None]
  - BLOOD PRESSURE SYSTOLIC INCREASED [None]
  - CHEST DISCOMFORT [None]
  - CONDITION AGGRAVATED [None]
  - CONSTIPATION [None]
  - DIARRHOEA [None]
  - ELECTROCARDIOGRAM ST SEGMENT ABNORMAL [None]
  - EPISTAXIS [None]
  - GASTRITIS [None]
  - GASTROINTESTINAL HAEMORRHAGE [None]
  - HAEMOGLOBIN DECREASED [None]
  - KIDNEY INFECTION [None]
  - LEFT VENTRICULAR HYPERTROPHY [None]
  - MEAN CELL VOLUME DECREASED [None]
  - MITRAL VALVE INCOMPETENCE [None]
  - MYOCARDIAL ISCHAEMIA [None]
  - PCO2 DECREASED [None]
  - PO2 INCREASED [None]
  - SINUS TACHYCARDIA [None]
  - URINARY TRACT INFECTION [None]
  - VOMITING [None]
